FAERS Safety Report 6800357-8 (Version None)
Quarter: 2010Q2

REPORT INFORMATION
  Report Type: 
  Country: None (occurrence: None)
  Receive Date: 20100623
  Receipt Date: 20100617
  Transmission Date: 20101027
  Serious: Yes (Hospitalization)
  Sender: FDA-Public Use
  Company Number: WAES 0906USA03256

PATIENT
  Age: 46 Year
  Sex: Male
  Weight: 70.7611 kg

DRUGS (5)
  1. ISENTRESS [Suspect]
     Indication: HIV INFECTION
     Dosage: 800 MG/DAILY/PO
     Route: 048
     Dates: start: 20090515, end: 20090615
  2. PLACEBO (UNSPECIFIED) UNK [Suspect]
     Indication: HIV INFECTION
     Dosage: 1 TAB/BID/PO
     Route: 048
     Dates: start: 20090515, end: 20090615
  3. TRUVADA [Suspect]
     Indication: HIV INFECTION
     Dosage: 1 TAB/DAILY/PO
     Route: 048
     Dates: start: 20090515, end: 20090615
  4. LEVITRA [Concomitant]
  5. XYZAL [Concomitant]

REACTIONS (5)
  - EPISTAXIS [None]
  - GINGIVAL BLEEDING [None]
  - HEADACHE [None]
  - RECTAL HAEMORRHAGE [None]
  - THROMBOCYTOPENIA [None]
